FAERS Safety Report 7256955-3 (Version None)
Quarter: 2011Q1

REPORT INFORMATION
  Report Type: 
  Country: None (occurrence: None)
  Receive Date: 20110129
  Receipt Date: 20100714
  Transmission Date: 20110831
  Serious: No
  Sender: FDA-Public Use
  Company Number: US-ABBOTT-10P-163-0657154-00

PATIENT
  Age: 57 Year
  Sex: Female

DRUGS (17)
  1. HUMIRA [Suspect]
     Indication: RHEUMATOID ARTHRITIS
     Dates: start: 20100501
  2. ARAVA [Concomitant]
     Indication: RHEUMATOID ARTHRITIS
  3. CARAFATE [Concomitant]
     Indication: PROPHYLAXIS
  4. POTASSIUM [Concomitant]
     Indication: ELECTROLYTE SUBSTITUTION THERAPY
  5. VERAPAMIL [Concomitant]
     Indication: VASCULITIS
  6. HYDROCODONE [Concomitant]
     Indication: PAIN
  7. NASAL [Concomitant]
     Indication: HYPERSENSITIVITY
  8. CHLOROTHALADONE [Concomitant]
     Indication: FLUID RETENTION
  9. METHOTREXATE [Concomitant]
     Indication: RHEUMATOID ARTHRITIS
  10. NEXIUM [Concomitant]
     Indication: GASTROOESOPHAGEAL REFLUX DISEASE
  11. FOSAMAX [Concomitant]
     Indication: BONE DENSITY ABNORMAL
  12. VERAPAMIL [Concomitant]
     Indication: RAYNAUD'S PHENOMENON
  13. PREDNISONE [Concomitant]
     Indication: RHEUMATOID ARTHRITIS
  14. LEVOTHYROXINE SODIUM [Concomitant]
     Indication: HYPOTHYROIDISM
  15. CARAFATE [Concomitant]
     Indication: ADVERSE DRUG REACTION
  16. FOLIC ACID [Concomitant]
     Indication: PRODUCT USED FOR UNKNOWN INDICATION
  17. COLCHICINE [Concomitant]
     Indication: INFLAMMATION

REACTIONS (1)
  - INJECTION SITE PAIN [None]
